FAERS Safety Report 25017825 (Version 1)
Quarter: 2025Q1

REPORT INFORMATION
  Report Type: Spontaneous
  Country: US (occurrence: US)
  Receive Date: 20250227
  Receipt Date: 20250227
  Transmission Date: 20250409
  Serious: No
  Sender: BIOCRYST PHARMACEUTICALS
  Company Number: US-INTAKEP-CASE-0000010

PATIENT

DRUGS (10)
  1. ORLADEYO [Suspect]
     Active Substance: BEROTRALSTAT HYDROCHLORIDE
     Indication: Hereditary angioedema
     Dosage: 150 MG, QD
     Route: 048
     Dates: start: 20250102
  2. FIRAZYR [Concomitant]
     Active Substance: ICATIBANT ACETATE
  3. CRESTOR [Concomitant]
     Active Substance: ROSUVASTATIN CALCIUM
  4. WELLBUTRIN [Concomitant]
     Active Substance: BUPROPION HYDROCHLORIDE
  5. PLAVIX [Concomitant]
     Active Substance: CLOPIDOGREL BISULFATE
  6. ASPIRIN [Concomitant]
     Active Substance: ASPIRIN
  7. ROPINIROLE [Concomitant]
     Active Substance: ROPINIROLE
  8. LUNESTA [Concomitant]
     Active Substance: ESZOPICLONE
  9. TOPAMAX [Concomitant]
     Active Substance: TOPIRAMATE
  10. MIRALAX [Concomitant]
     Active Substance: POLYETHYLENE GLYCOL 3350

REACTIONS (10)
  - Abdominal distension [Not Recovered/Not Resolved]
  - Dyspepsia [Not Recovered/Not Resolved]
  - Headache [Recovered/Resolved]
  - Flatulence [Not Recovered/Not Resolved]
  - Vomiting [Unknown]
  - Pain [Not Recovered/Not Resolved]
  - Disorientation [Not Recovered/Not Resolved]
  - Somnolence [Unknown]
  - Dizziness [Unknown]
  - Nasopharyngitis [Not Recovered/Not Resolved]

NARRATIVE: CASE EVENT DATE: 20250101
